FAERS Safety Report 9732705 (Version 1)
Quarter: 2013Q4

REPORT INFORMATION
  Report Type: Spontaneous
  Country: US (occurrence: US)
  Receive Date: 20131204
  Receipt Date: 20131204
  Transmission Date: 20140711
  Serious: Yes (Other)
  Sender: FDA-Public Use
  Company Number: US-BAYER-2013-147446

PATIENT
  Age: 45 Year
  Sex: Female
  Weight: 63.95 kg

DRUGS (7)
  1. YASMIN [Suspect]
  2. YAZ [Suspect]
     Indication: CONTRACEPTION
  3. PONSTEL [Concomitant]
     Dosage: 250 MG, UNK
     Dates: start: 20070203
  4. PROPRANOLOL [Concomitant]
     Dosage: 40 MG, UNK
     Dates: start: 20070113
  5. LEVAQUIN [Concomitant]
  6. IBUPROFEN [Concomitant]
  7. IRON [Concomitant]

REACTIONS (1)
  - Pulmonary embolism [None]
